FAERS Safety Report 8304226-6 (Version None)
Quarter: 2012Q2

REPORT INFORMATION
  Report Type: 
  Country: None (occurrence: None)
  Receive Date: 20120423
  Receipt Date: 20120412
  Transmission Date: 20120825
  Serious: Yes (Other)
  Sender: FDA-Public Use
  Company Number: US-ASTRAZENECA-2012SE22020

PATIENT
  Age: 80 Year
  Sex: Female

DRUGS (1)
  1. PULMICORT FLEXHALER [Suspect]
     Route: 055

REACTIONS (7)
  - CYSTITIS [None]
  - IRRITABLE BOWEL SYNDROME [None]
  - HEARING IMPAIRED [None]
  - DRY EYE [None]
  - MEMORY IMPAIRMENT [None]
  - GLAUCOMA [None]
  - ARTHRITIS [None]
